FAERS Safety Report 5134808-4 (Version None)
Quarter: 2006Q4

REPORT INFORMATION
  Report Type: 
  Country: None (occurrence: None)
  Receive Date: 20061025
  Receipt Date: 20061016
  Transmission Date: 20070319
  Serious: Yes (Other)
  Sender: FDA-Public Use
  Company Number: JP-SANOFI-SYNTHELABO-A01200608924

PATIENT
  Sex: Female

DRUGS (3)
  1. FLUOROURACIL [Concomitant]
     Indication: COLON CANCER
     Route: 042
  2. LEVFOLINATE CLACIUM [Concomitant]
     Indication: COLON CANCER
     Route: 042
  3. OXALIPLATIN [Suspect]
     Indication: COLON CANCER
     Route: 042

REACTIONS (2)
  - HYPERAMMONAEMIA [None]
  - LOSS OF CONSCIOUSNESS [None]
